FAERS Safety Report 7668515-0 (Version None)
Quarter: 2011Q3

REPORT INFORMATION
  Report Type: 
  Country: None (occurrence: None)
  Receive Date: 20110808
  Receipt Date: 20110803
  Transmission Date: 20111222
  Serious: Yes (Other)
  Sender: FDA-Public Use
  Company Number: IE-BRISTOL-MYERS SQUIBB COMPANY-15947039

PATIENT

DRUGS (1)
  1. ABATACEPT [Suspect]

REACTIONS (1)
  - MYOCARDIAL INFARCTION [None]
